FAERS Safety Report 9404871 (Version 2)
Quarter: 2013Q3

REPORT INFORMATION
  Report Type: Spontaneous
  Country: DE (occurrence: DE)
  Receive Date: 20130717
  Receipt Date: 20130816
  Transmission Date: 20140515
  Serious: Yes (Other)
  Sender: FDA-Public Use
  Company Number: DE-BAYER-2013-084727

PATIENT
  Age: 85 Year
  Sex: Male
  Weight: 77 kg

DRUGS (9)
  1. CIPROBAY [Suspect]
     Indication: PROSTATITIS
     Dosage: 500 MG, UNK
     Dates: start: 20081128, end: 20081207
  2. DELIX [Suspect]
  3. RAMIPRIL [Concomitant]
  4. METFORMIN HYDROCHLORIDE [Concomitant]
     Indication: DIABETES MELLITUS
  5. SIMVASTATIN [Concomitant]
     Dosage: 10 MG, UNK
  6. CRATAEGUTT NOVO [Concomitant]
     Dosage: 2 DF, UNK
     Route: 048
  7. MARCUMAR [Concomitant]
     Dosage: 3 MG, UNK
  8. PHENPROCOUMON [Concomitant]
  9. ALLOPURINOL [Concomitant]
     Dosage: 150 MG, UNK

REACTIONS (11)
  - General physical health deterioration [Recovered/Resolved]
  - Renal function test abnormal [Recovered/Resolved]
  - Renal failure [None]
  - Drug interaction [None]
  - Nausea [Recovered/Resolved]
  - Decreased appetite [Recovered/Resolved]
  - Hyperhidrosis [Recovered/Resolved]
  - Sleep disorder [Recovered/Resolved]
  - Blood creatinine increased [Recovered/Resolved]
  - Blood urea increased [Recovered/Resolved]
  - Renal failure acute [None]
